FAERS Safety Report 7644649-1 (Version None)
Quarter: 2011Q3

REPORT INFORMATION
  Report Type: 
  Country: None (occurrence: None)
  Receive Date: 20110725
  Receipt Date: 20110712
  Transmission Date: 20111222
  Serious: No
  Sender: FDA-Public Use
  Company Number: DSJ-2011-08771

PATIENT
  Age: 64 Year
  Sex: Female

DRUGS (2)
  1. BENICAR [Suspect]
     Indication: HYPERTENSION
     Dosage: 20-MG (20 MG, 1 IN 1 D),PER ORAL
     Route: 048
     Dates: start: 20110301, end: 20110401
  2. CLONAZEPAM [Concomitant]

REACTIONS (4)
  - ABDOMINAL PAIN [None]
  - HEADACHE [None]
  - VIRAL INFECTION [None]
  - ASTHENIA [None]
